FAERS Safety Report 5682798-8 (Version None)
Quarter: 2008Q1

REPORT INFORMATION
  Report Type: 
  Country: None (occurrence: None)
  Receive Date: 20080327
  Receipt Date: 20080321
  Transmission Date: 20080703
  Serious: Yes (Other)
  Sender: FDA-Public Use
  Company Number: US-ASTRAZENECA-2008UW05803

PATIENT
  Sex: Female

DRUGS (4)
  1. NEXIUM [Suspect]
     Indication: GASTROOESOPHAGEAL REFLUX DISEASE
     Route: 048
  2. NEXIUM [Suspect]
     Route: 048
  3. PLAVIX [Concomitant]
  4. BLOOD PRESSURE PILLS [Concomitant]
     Indication: BLOOD PRESSURE

REACTIONS (6)
  - CHOLELITHIASIS [None]
  - DRUG INEFFECTIVE [None]
  - FLATULENCE [None]
  - HIATUS HERNIA [None]
  - NAUSEA [None]
  - STENT-GRAFT MALFUNCTION [None]
